FAERS Safety Report 24571136 (Version 1)
Quarter: 2024Q4

REPORT INFORMATION
  Report Type: Spontaneous
  Country: JP (occurrence: JP)
  Receive Date: 20241101
  Receipt Date: 20241101
  Transmission Date: 20250115
  Serious: Yes (Other)
  Sender: GLAXOSMITHKLINE
  Company Number: None

PATIENT

DRUGS (2)
  1. NUCALA [Suspect]
     Active Substance: MEPOLIZUMAB
     Indication: Eosinophilic granulomatosis with polyangiitis
     Dosage: 300 MG
  2. NUCALA [Suspect]
     Active Substance: MEPOLIZUMAB
     Dosage: 200 MG

REACTIONS (6)
  - Pneumonia [Unknown]
  - Septic shock [Unknown]
  - Asthma [Unknown]
  - Urinary tract infection [Unknown]
  - Bronchitis bacterial [Unknown]
  - Cellulitis [Unknown]
